FAERS Safety Report 8888759 (Version 2)
Quarter: 2012Q4

REPORT INFORMATION
  Report Type: 
  Country: US (occurrence: US)
  Receive Date: 20121106
  Receipt Date: 20121218
  Transmission Date: 20130627
  Serious: No
  Sender: FDA-Public Use
  Company Number: US-ASTRAZENECA-2012SE82101

PATIENT
  Age: 91 Year
  Sex: Male

DRUGS (2)
  1. TOPROL XL [Suspect]
     Route: 048
  2. BABY ASPIRIN [Concomitant]

REACTIONS (2)
  - Bradyphrenia [Unknown]
  - Abnormal sensation in eye [Unknown]
